FAERS Safety Report 6859519-6 (Version None)
Quarter: 2010Q3

REPORT INFORMATION
  Report Type: 
  Country: None (occurrence: None)
  Receive Date: 20100719
  Receipt Date: 20080415
  Transmission Date: 20110219
  Serious: No
  Sender: FDA-Public Use
  Company Number: US-PFIZER INC-2008021143

PATIENT
  Sex: Female
  Weight: 54.9 kg

DRUGS (11)
  1. CHANTIX [Suspect]
     Indication: SMOKING CESSATION THERAPY
     Dates: start: 20080128, end: 20080204
  2. LEXAPRO [Concomitant]
     Indication: DEPRESSION
  3. CRIXIVAN [Concomitant]
  4. EPIVIR [Concomitant]
  5. SYNTHROID [Concomitant]
  6. PRAVACHOL [Concomitant]
  7. CRESTOR [Concomitant]
  8. ZOLPIDEM TARTRATE [Concomitant]
  9. XANAX [Concomitant]
  10. IBANDRONATE SODIUM [Concomitant]
  11. ZOLPIDEM TARTRATE [Concomitant]

REACTIONS (1)
  - ANXIETY [None]
